FAERS Safety Report 7075421-1 (Version None)
Quarter: 2010Q4

REPORT INFORMATION
  Report Type: 
  Country: None (occurrence: None)
  Receive Date: 20101030
  Receipt Date: 20100915
  Transmission Date: 20110411
  Serious: No
  Sender: FDA-Public Use
  Company Number: US-WYE-H17585810

PATIENT
  Age: 42 Year
  Sex: Male
  Weight: 72.64 kg

DRUGS (1)
  1. ALAVERT [Suspect]
     Indication: HYPERSENSITIVITY
     Route: 048
     Dates: start: 20100825, end: 20100914

REACTIONS (1)
  - DRUG INEFFECTIVE [None]
